FAERS Safety Report 8841776 (Version 1)
Quarter: 2012Q4

REPORT INFORMATION
  Report Type: 
  Country: DE (occurrence: DE)
  Receive Date: 20121016
  Receipt Date: 20121016
  Transmission Date: 20130627
  Serious: Yes (Other)
  Sender: FDA-Public Use
  Company Number: DE-JNJFOC-20120901078

PATIENT
  Age: 37 Year
  Sex: Female

DRUGS (2)
  1. REMICADE [Suspect]
     Indication: CROHN^S DISEASE
     Route: 042
     Dates: start: 201105
  2. CORTISONE [Concomitant]
     Route: 065
     Dates: start: 201109, end: 201112

REACTIONS (2)
  - Lupus-like syndrome [Recovered/Resolved]
  - Alopecia [Recovered/Resolved]
